FAERS Safety Report 4892222-0 (Version None)
Quarter: 2006Q1

REPORT INFORMATION
  Report Type: 
  Country: None (occurrence: None)
  Receive Date: 20060125
  Receipt Date: 20060125
  Transmission Date: 20060701
  Serious: No
  Sender: FDA-Public Use
  Company Number: None

PATIENT
  Age: 60 Year
  Sex: Male
  Weight: 63 kg

DRUGS (1)
  1. FERRIC GLUCONATE [Suspect]
     Indication: IRON DEFICIENCY ANAEMIA
     Dosage: 250MG, IV
     Route: 042
     Dates: start: 20050913

REACTIONS (3)
  - BODY TEMPERATURE INCREASED [None]
  - FATIGUE [None]
  - HYPERHIDROSIS [None]
